FAERS Safety Report 5062993-1 (Version None)
Quarter: 2006Q3

REPORT INFORMATION
  Report Type: 
  Country: None (occurrence: None)
  Receive Date: 20060724
  Receipt Date: 20060717
  Transmission Date: 20061208
  Serious: Yes (Hospitalization)
  Sender: FDA-Public Use
  Company Number: 225735

PATIENT
  Age: 79 Year
  Sex: Female
  Weight: 91.6 kg

DRUGS (9)
  1. AVASTIN [Suspect]
     Indication: BREAST CANCER
     Dosage: 15 MG/KG, Q3W, INTRAVENOUS
     Route: 042
     Dates: start: 20060503
  2. AVASTIN [Suspect]
  3. TOPROL-XL [Concomitant]
  4. LIPITOR [Concomitant]
  5. SINGULAIR [Concomitant]
  6. DIOVAN [Concomitant]
  7. CLONIDINE [Concomitant]
  8. COMBIVENT [Concomitant]
  9. TRAMADOL HCL [Concomitant]

REACTIONS (11)
  - ALANINE AMINOTRANSFERASE INCREASED [None]
  - ASPARTATE AMINOTRANSFERASE INCREASED [None]
  - BLOOD ALKALINE PHOSPHATASE INCREASED [None]
  - BLOOD BILIRUBIN INCREASED [None]
  - CHOLELITHIASIS [None]
  - CHROMATURIA [None]
  - DECREASED APPETITE [None]
  - FAECES PALE [None]
  - HEPATOMEGALY [None]
  - NAUSEA [None]
  - VOMITING [None]
